FAERS Safety Report 6976929-7 (Version None)
Quarter: 2010Q3

REPORT INFORMATION
  Report Type: 
  Country: None (occurrence: None)
  Receive Date: 20100910
  Receipt Date: 20090501
  Transmission Date: 20110219
  Serious: No
  Sender: FDA-Public Use
  Company Number: US-WYE-H09187309

PATIENT
  Age: 57 Year
  Sex: Female
  Weight: 86.26 kg

DRUGS (7)
  1. PRISTIQ [Suspect]
     Indication: DEPRESSION
     Route: 048
     Dates: start: 20081101, end: 20090429
  2. TRAZODONE HCL [Concomitant]
  3. LEXAPRO [Concomitant]
  4. SUBOXONE [Concomitant]
  5. XANAX [Concomitant]
  6. REMERON [Concomitant]
  7. AMBIEN [Concomitant]

REACTIONS (9)
  - ASTHENIA [None]
  - C-REACTIVE PROTEIN INCREASED [None]
  - CONDITION AGGRAVATED [None]
  - DEPRESSION [None]
  - HYPERCHOLESTEROLAEMIA [None]
  - HYPERTRIGLYCERIDAEMIA [None]
  - PALLOR [None]
  - URINE OUTPUT DECREASED [None]
  - WHITE BLOOD CELL COUNT INCREASED [None]
